FAERS Safety Report 20683007 (Version 1)
Quarter: 2022Q2

REPORT INFORMATION
  Report Type: Report from Study
  Country: CA (occurrence: CA)
  Receive Date: 20220407
  Receipt Date: 20220407
  Transmission Date: 20220720
  Serious: Yes (Other)
  Sender: FDA-Public Use
  Company Number: CA-JNJFOC-20220400833

PATIENT
  Age: 33 Year
  Sex: Male

DRUGS (2)
  1. SIMPONI [Suspect]
     Active Substance: GOLIMUMAB
     Indication: Ankylosing spondylitis
     Route: 058
     Dates: start: 20211130
  2. SIMPONI [Suspect]
     Active Substance: GOLIMUMAB
     Dosage: 100 MG FOR 3 DOSES AND ALSO REPORTED 1 DOSE OF 100 MG EVERY MONTH, FOR A DURATION OF 3 MONTHS AND RE
     Route: 058
     Dates: start: 20220330

REACTIONS (4)
  - Ankylosing spondylitis [Unknown]
  - COVID-19 [Unknown]
  - Product use issue [Unknown]
  - Off label use [Unknown]

NARRATIVE: CASE EVENT DATE: 20220101
